FAERS Safety Report 7512367-6 (Version None)
Quarter: 2011Q2

REPORT INFORMATION
  Report Type: 
  Country: None (occurrence: None)
  Receive Date: 20110531
  Receipt Date: 20110518
  Transmission Date: 20111010
  Serious: Yes (Other)
  Sender: FDA-Public Use
  Company Number: FR-ROCHE-681891

PATIENT
  Age: 79 Year
  Sex: Male

DRUGS (6)
  1. METHOXY POLYETHYLENE GLYCOL-EPOETIN BETA [Suspect]
     Dosage: FREQUENCY: 1 INJECTION PER 1 MONTH, PATIENT RECEIVED TOTAL 5 DOSE CYCLES OF MIRCERA
     Route: 058
     Dates: start: 20090912, end: 20100113
  2. METHOXY POLYETHYLENE GLYCOL-EPOETIN BETA [Suspect]
     Dosage: FREQUENCY: 1 INJECTION PER 1 MONTH, DOSE MODIFIED ON 3 FEB 2010  FROM 100 UG TO 50 UG, TOTAL DOSES:7
     Route: 058
     Dates: start: 20100226
  3. FERROUS SULFATE TAB [Concomitant]
     Dates: start: 20090908, end: 20100429
  4. VITAMIN B-12 [Concomitant]
     Dates: start: 20090908
  5. FERROUS SULFATE TAB [Concomitant]
     Dates: start: 20100909
  6. FOLIC ACID [Concomitant]
     Dates: start: 20090908, end: 20100120

REACTIONS (1)
  - PLATELET COUNT DECREASED [None]
